FAERS Safety Report 8872533 (Version 1)
Quarter: 2012Q4

REPORT INFORMATION
  Report Type: 
  Country: US (occurrence: US)
  Receive Date: 20121029
  Receipt Date: 20121029
  Transmission Date: 20130627
  Serious: No
  Sender: FDA-Public Use
  Company Number: US-B.I. PHARMACEUTICALS,INC./RIDGEFIELD-2012-BP-26287BP

PATIENT
  Age: 85 None
  Sex: Female
  Weight: 68 kg

DRUGS (14)
  1. SPIRIVA [Suspect]
     Indication: CHRONIC OBSTRUCTIVE PULMONARY DISEASE
     Dosage: 18 mcg
     Route: 055
     Dates: start: 2006
  2. ADVAIR [Concomitant]
     Indication: CHRONIC OBSTRUCTIVE PULMONARY DISEASE
     Route: 055
     Dates: start: 2006
  3. NEBULIZER ALBUTEROL [Concomitant]
     Indication: CHRONIC OBSTRUCTIVE PULMONARY DISEASE
     Route: 055
     Dates: start: 2010
  4. FUROSEMIDE [Concomitant]
     Indication: FLUID RETENTION
     Dosage: 40 mg
     Route: 048
     Dates: start: 1992
  5. LOSARTAN [Concomitant]
     Indication: HYPERTENSION
     Dosage: 50 mg
     Route: 048
     Dates: start: 2004
  6. METOPROLOL [Concomitant]
     Indication: HYPERTENSION
     Dosage: 25 mg
     Route: 048
     Dates: start: 1986
  7. PLAVIX [Concomitant]
     Indication: THROMBOSIS
     Dosage: 75 mg
     Route: 048
     Dates: start: 1997
  8. FOLIC ACID [Concomitant]
     Dosage: 1 mg
     Route: 048
  9. LEVOTHYROXINE [Concomitant]
     Indication: HYPOTHYROIDISM
     Dosage: 75 mg
     Route: 048
     Dates: start: 2002
  10. PROZAC [Concomitant]
     Indication: ANXIETY
     Dosage: 20 mg
     Route: 048
     Dates: start: 2005
  11. PACERONE [Concomitant]
     Indication: CARDIAC DISORDER
     Dosage: 100 mg
     Route: 048
     Dates: start: 2004
  12. NITROGLYCERIN [Concomitant]
     Dates: start: 1986
  13. TYLENOL [Concomitant]
     Route: 048
  14. TUMS [Concomitant]
     Indication: DYSPEPSIA
     Route: 048

REACTIONS (5)
  - Wheezing [Not Recovered/Not Resolved]
  - Herpes zoster [Recovered/Resolved]
  - Herpes zoster [Recovered/Resolved]
  - Product quality issue [Recovered/Resolved]
  - Dyspnoea [Unknown]
